FAERS Safety Report 23064064 (Version 1)
Quarter: 2023Q4

REPORT INFORMATION
  Report Type: Report from Study
  Country: US (occurrence: US)
  Receive Date: 20231013
  Receipt Date: 20231013
  Transmission Date: 20240109
  Serious: Yes (Hospitalization)
  Sender: FDA-Public Use
  Company Number: US-MYLANLABS-2023M1107187

PATIENT
  Age: 6 Decade
  Sex: Female

DRUGS (3)
  1. HEPARIN [Suspect]
     Active Substance: HEPARIN SODIUM
     Indication: Thrombosis prophylaxis
     Dosage: UNK
     Route: 065
  2. CANGRELOR [Suspect]
     Active Substance: CANGRELOR
     Indication: Thrombosis prophylaxis
     Dosage: 5 MICROGRAM/KILOGRAM; 5MICROG/KG BOLUS OVER 30S (INTRAVENOUS BOLUS)
     Route: 042
  3. CANGRELOR [Suspect]
     Active Substance: CANGRELOR
     Dosage: 1 MICROGRAM/KILOGRAM, QMINUTE; MAINTENANCE INFUSION OF 1.0MICROG/KG/MIN
     Route: 042

REACTIONS (1)
  - Drug ineffective [Unknown]
